FAERS Safety Report 9651800 (Version 1)
Quarter: 2013Q4

REPORT INFORMATION
  Report Type: Spontaneous
  Country: US (occurrence: US)
  Receive Date: 20131029
  Receipt Date: 20131029
  Transmission Date: 20140711
  Serious: No
  Sender: FDA-Public Use
  Company Number: US-ENDO PHARMACEUTICALS INC.-HCDA20120025

PATIENT
  Sex: Female

DRUGS (2)
  1. HYDROCODONE/ACETAMINOPHEN SOLUTION 7.5MG/500MG PER 15ML [Suspect]
     Indication: LARYNGEAL POLYPECTOMY
     Dosage: UNKNOWN
     Route: 048
     Dates: start: 2012
  2. HYDROCODONE/ACETAMINOPHEN SOLUTION 7.5MG/500MG PER 15ML [Suspect]
     Indication: PAIN

REACTIONS (4)
  - Suture rupture [Not Recovered/Not Resolved]
  - Throat irritation [Not Recovered/Not Resolved]
  - Dysphagia [Not Recovered/Not Resolved]
  - Vomiting projectile [Unknown]
